FAERS Safety Report 23393350 (Version 15)
Quarter: 2025Q3

REPORT INFORMATION
  Report Type: Spontaneous
  Country: US (occurrence: US)
  Receive Date: 20240111
  Receipt Date: 20250707
  Transmission Date: 20251020
  Serious: Yes (Other)
  Sender: VERTEX
  Company Number: US-VERTEX PHARMACEUTICALS-2024-000309

PATIENT
  Age: 59 Year

DRUGS (7)
  1. TRIKAFTA [Suspect]
     Active Substance: ELEXACAFTOR\IVACAFTOR\TEZACAFTOR
     Indication: Cystic fibrosis
     Route: 048
  2. TRIKAFTA [Suspect]
     Active Substance: ELEXACAFTOR\IVACAFTOR\TEZACAFTOR
     Route: 048
  3. TRIKAFTA [Suspect]
     Active Substance: ELEXACAFTOR\IVACAFTOR\TEZACAFTOR
     Route: 048
  4. TRIKAFTA [Suspect]
     Active Substance: ELEXACAFTOR\IVACAFTOR\TEZACAFTOR
     Route: 048
  5. TRIKAFTA [Suspect]
     Active Substance: ELEXACAFTOR\IVACAFTOR\TEZACAFTOR
     Route: 048
  6. TRIKAFTA [Suspect]
     Active Substance: ELEXACAFTOR\IVACAFTOR\TEZACAFTOR
     Route: 048
  7. MARAX [Suspect]
     Active Substance: CROTAMITON
     Indication: Product used for unknown indication
     Route: 065

REACTIONS (22)
  - Glucose tolerance test abnormal [Unknown]
  - Cystic fibrosis related diabetes [Unknown]
  - Anxiety [Recovering/Resolving]
  - Crying [Unknown]
  - Tinnitus [Not Recovered/Not Resolved]
  - General physical health deterioration [Unknown]
  - Abdominal distension [Not Recovered/Not Resolved]
  - Tachyphrenia [Unknown]
  - Mental fatigue [Recovering/Resolving]
  - Abdominal pain [Not Recovered/Not Resolved]
  - Pancreatitis chronic [Not Recovered/Not Resolved]
  - Sleep terror [Recovered/Resolved]
  - Emotional disorder [Unknown]
  - Gastrointestinal disorder [Unknown]
  - Malabsorption [Unknown]
  - Weight decreased [Unknown]
  - Pancreatic failure [Not Recovered/Not Resolved]
  - Brain fog [Recovering/Resolving]
  - Insomnia [Recovering/Resolving]
  - Poor quality sleep [Recovering/Resolving]
  - Gastrointestinal pain [Recovering/Resolving]
  - Affect lability [Recovering/Resolving]
